FAERS Safety Report 8029146-6 (Version None)
Quarter: 2012Q1

REPORT INFORMATION
  Report Type: 
  Country: None (occurrence: None)
  Receive Date: 20120106
  Receipt Date: 20120103
  Transmission Date: 20120608
  Serious: Yes (Hospitalization, Other)
  Sender: FDA-Public Use
  Company Number: PHHY2011KR105554

PATIENT
  Sex: Male

DRUGS (1)
  1. EXJADE [Suspect]
     Indication: IRON OVERLOAD
     Dosage: 1000 MG/DAY
     Route: 048
     Dates: start: 20081117

REACTIONS (5)
  - HYDRONEPHROSIS [None]
  - DECREASED APPETITE [None]
  - CALCULUS URINARY [None]
  - INTESTINAL OBSTRUCTION [None]
  - URINARY TRACT INFLAMMATION [None]
